FAERS Safety Report 8801793 (Version 1)
Quarter: 2012Q4

REPORT INFORMATION
  Report Type: 
  Country: CH (occurrence: CH)
  Receive Date: 20120921
  Receipt Date: 20120921
  Transmission Date: 20130627
  Serious: Yes (Other)
  Sender: FDA-Public Use
  Company Number: CH-ROCHE-1131328

PATIENT
  Age: 8 Year
  Sex: Female

DRUGS (6)
  1. MYCOPHENOLATE MOFETIL [Suspect]
     Indication: PROPHYLAXIS AGAINST TRANSPLANT REJECTION
     Dosage: Dose withheld
     Route: 065
  2. MYCOPHENOLATE MOFETIL [Suspect]
     Dosage: Re-started.
     Route: 065
  3. BASILIXIMAB [Suspect]
     Indication: PROPHYLAXIS AGAINST TRANSPLANT REJECTION
  4. TACROLIMUS [Suspect]
     Indication: PROPHYLAXIS AGAINST TRANSPLANT REJECTION
  5. VALGANCICLOVIR [Concomitant]
     Indication: ANTIVIRAL PROPHYLAXIS
  6. COTRIMOXAZOLE [Concomitant]
     Indication: ANTIFUNGAL PROPHYLAXIS

REACTIONS (2)
  - Gastroenteritis norovirus [Recovered/Resolved]
  - Agranulocytosis [Recovered/Resolved]
